FAERS Safety Report 13770466 (Version 1)
Quarter: 2017Q3

REPORT INFORMATION
  Report Type: Spontaneous
  Country: HU (occurrence: HU)
  Receive Date: 20170719
  Receipt Date: 20170719
  Transmission Date: 20171127
  Serious: Yes (Other)
  Sender: FDA-Public Use
  Company Number: HU-B.I. PHARMACEUTICALS,INC./RIDGEFIELD-2017-BI-040270

PATIENT
  Age: 69 Year
  Sex: Male

DRUGS (19)
  1. RETAPHYLLIN [Concomitant]
     Indication: BRONCHITIS CHRONIC
     Dates: start: 20080124, end: 201106
  2. ATIMOS [Concomitant]
     Active Substance: FORMOTEROL
     Indication: RESPIRATORY DISORDER
     Route: 065
     Dates: start: 20130626, end: 20151214
  3. DIAPREL [Concomitant]
     Active Substance: GLICLAZIDE
     Indication: PRODUCT USED FOR UNKNOWN INDICATION
     Route: 065
  4. BERODUAL [Suspect]
     Active Substance: FENOTEROL HYDROBROMIDE\IPRATROPIUM BROMIDE
     Indication: EMPHYSEMA
  5. RETAPHYLLIN [Concomitant]
     Indication: RESPIRATORY DISORDER
  6. SYMBICORT [Concomitant]
     Active Substance: BUDESONIDE\FORMOTEROL FUMARATE DIHYDRATE
     Indication: RESPIRATORY DISORDER
     Route: 065
  7. BERODUAL N [Suspect]
     Active Substance: FENOTEROL HYDROBROMIDE\IPRATROPIUM BROMIDE
     Indication: RESPIRATORY DISORDER
     Route: 065
  8. SPIRIVA [Suspect]
     Active Substance: TIOTROPIUM BROMIDE MONOHYDRATE
     Indication: RESPIRATORY DISORDER
     Route: 065
     Dates: end: 20151214
  9. ATROVENT [Concomitant]
     Active Substance: IPRATROPIUM BROMIDE
     Indication: BRONCHITIS CHRONIC
  10. SPIRON (SPIRONOLACTONE) [Concomitant]
     Active Substance: SPIRONOLACTONE
     Indication: PRODUCT USED FOR UNKNOWN INDICATION
     Route: 065
  11. SPIOLTO [Suspect]
     Active Substance: OLODATEROL HYDROCHLORIDE\TIOTROPIUM BROMIDE MONOHYDRATE
     Indication: CHRONIC OBSTRUCTIVE PULMONARY DISEASE
     Route: 065
  12. RETAPHYLLIN [Concomitant]
     Indication: EMPHYSEMA
     Route: 065
     Dates: start: 20040115
  13. FURON [Concomitant]
     Active Substance: FUROSEMIDE
     Indication: PRODUCT USED FOR UNKNOWN INDICATION
     Route: 065
     Dates: end: 201503
  14. UREGYT [Concomitant]
     Indication: PRODUCT USED FOR UNKNOWN INDICATION
     Route: 065
     Dates: start: 201503
  15. PROPANOLOL [Concomitant]
     Active Substance: PROPRANOLOL HYDROCHLORIDE
     Indication: PRODUCT USED FOR UNKNOWN INDICATION
     Route: 065
  16. ATROVENT [Concomitant]
     Active Substance: IPRATROPIUM BROMIDE
     Indication: RESPIRATORY DISORDER
  17. BERODUAL [Suspect]
     Active Substance: FENOTEROL HYDROBROMIDE\IPRATROPIUM BROMIDE
     Indication: BRONCHITIS CHRONIC
     Route: 065
     Dates: start: 20040115
  18. SPIRIVA [Suspect]
     Active Substance: TIOTROPIUM BROMIDE MONOHYDRATE
     Route: 065
     Dates: start: 20130626
  19. ATROVENT [Concomitant]
     Active Substance: IPRATROPIUM BROMIDE
     Indication: EMPHYSEMA
     Route: 065
     Dates: start: 20040115

REACTIONS (27)
  - Respiratory disorder [Recovering/Resolving]
  - Condition aggravated [Unknown]
  - Alcoholism [Unknown]
  - Dyspnoea [Unknown]
  - Bronchitis chronic [Unknown]
  - Bronchial disorder [Recovering/Resolving]
  - Alcoholism [Unknown]
  - Pneumonitis [Unknown]
  - Pneumonia [Unknown]
  - Psoriasis [Unknown]
  - Obesity [Unknown]
  - Nocturnal dyspnoea [Recovering/Resolving]
  - Diastolic dysfunction [Unknown]
  - Hypertension [Unknown]
  - Type 2 diabetes mellitus [Unknown]
  - Alcohol withdrawal syndrome [Unknown]
  - Herpes zoster [Unknown]
  - Pulmonary oedema [Unknown]
  - Hepatic enzyme increased [Unknown]
  - Anxiety [Unknown]
  - Condition aggravated [Unknown]
  - Chest pain [Unknown]
  - Fibrosis [Unknown]
  - Ascites [Unknown]
  - Hepatic steatosis [Unknown]
  - Hypertensive cardiomyopathy [Unknown]
  - Bronchitis [Recovering/Resolving]

NARRATIVE: CASE EVENT DATE: 20070104
